FAERS Safety Report 8996580 (Version 2)
Quarter: 2013Q1

REPORT INFORMATION
  Report Type: Spontaneous
  Country: US (occurrence: US)
  Receive Date: 20130104
  Receipt Date: 20130122
  Transmission Date: 20140127
  Serious: No
  Sender: FDA-Public Use
  Company Number: US-PFIZER INC-2012334415

PATIENT
  Age: 9 Year
  Sex: Female
  Weight: 29.5 kg

DRUGS (3)
  1. GENOTROPIN MQ [Suspect]
     Indication: BODY HEIGHT BELOW NORMAL
     Dosage: 1 MG, 1X/DAY
     Dates: start: 20100902
  2. GENOTROPIN MQ [Suspect]
     Dosage: 1.8 MG, 1X/DAY
     Dates: end: 201210
  3. GENOTROPIN MQ [Suspect]
     Dosage: 1.6 MG, 1X/DAY

REACTIONS (8)
  - Blood glucose increased [Recovered/Resolved]
  - Pollakiuria [Recovered/Resolved]
  - Thinking abnormal [Recovered/Resolved]
  - Weight increased [Recovering/Resolving]
  - Polydipsia [Unknown]
  - Polyuria [Unknown]
  - Hyperglycaemia [Unknown]
  - Insulin resistance [Unknown]
